FAERS Safety Report 6465099-X (Version None)
Quarter: 2009Q4

REPORT INFORMATION
  Report Type: 
  Country: None (occurrence: None)
  Receive Date: 20091201
  Receipt Date: 20090520
  Transmission Date: 20100525
  Serious: No
  Sender: FDA-Public Use
  Company Number: US-AMGEN-COG340735

PATIENT
  Sex: Female

DRUGS (4)
  1. ENBREL [Suspect]
     Indication: RHEUMATOID ARTHRITIS
     Route: 058
     Dates: start: 20071031
  2. METHOTREXATE [Concomitant]
     Route: 048
     Dates: start: 20060601
  3. HYDROCHLOROTHIAZIDE [Concomitant]
     Dates: start: 20060101
  4. PREDNISONE [Concomitant]
     Dates: start: 20060101

REACTIONS (5)
  - EYE PRURITUS [None]
  - OCULAR HYPERAEMIA [None]
  - PRURITUS GENERALISED [None]
  - TENDON DISORDER [None]
  - URTICARIA [None]
